FAERS Safety Report 9103006 (Version 2)
Quarter: 2013Q1

REPORT INFORMATION
  Report Type: Spontaneous
  Country: US (occurrence: US)
  Receive Date: 20130219
  Receipt Date: 20130320
  Transmission Date: 20140127
  Serious: No
  Sender: FDA-Public Use
  Company Number: US-JNJFOC-20130208574

PATIENT
  Age: 22 Year
  Sex: Female

DRUGS (12)
  1. FLUCONAZOLE [Suspect]
     Indication: CANDIDA INFECTION
     Route: 048
  2. FLUCONAZOLE [Suspect]
     Indication: CANDIDA INFECTION
     Route: 048
  3. FLUCONAZOLE [Suspect]
     Indication: CANDIDA INFECTION
     Route: 048
  4. FLUCONAZOLE [Suspect]
     Indication: CANDIDA INFECTION
     Dosage: LOADING DOSE
     Route: 048
  5. TERCONAZOLE [Suspect]
     Indication: PRODUCT USED FOR UNKNOWN INDICATION
     Dosage: NIGHTLY
     Route: 067
  6. CLOTRIMAZOLE [Suspect]
     Indication: CANDIDA INFECTION
     Route: 067
  7. AMPICILLIN [Suspect]
     Indication: PRODUCT USED FOR UNKNOWN INDICATION
     Route: 042
  8. AMPICILLIN [Suspect]
     Indication: PRODUCT USED FOR UNKNOWN INDICATION
     Route: 048
  9. AZITHROMYCIN [Suspect]
     Indication: PRODUCT USED FOR UNKNOWN INDICATION
     Route: 042
  10. AZITHROMYCIN [Suspect]
     Indication: PRODUCT USED FOR UNKNOWN INDICATION
     Route: 048
  11. GENTAMICIN [Suspect]
     Indication: PRODUCT USED FOR UNKNOWN INDICATION
  12. CEFAZOLIN [Suspect]
     Indication: PRODUCT USED FOR UNKNOWN INDICATION
     Route: 065

REACTIONS (2)
  - Exposure during pregnancy [Recovered/Resolved]
  - Incorrect route of drug administration [Unknown]
